FAERS Safety Report 20719342 (Version 2)
Quarter: 2022Q2

REPORT INFORMATION
  Report Type: Spontaneous
  Country: JP (occurrence: JP)
  Receive Date: 20220418
  Receipt Date: 20220623
  Transmission Date: 20220720
  Serious: No
  Sender: FDA-Public Use
  Company Number: JP-GLAXOSMITHKLINE-JP2022JPN064827

PATIENT

DRUGS (4)
  1. SOTROVIMAB [Suspect]
     Active Substance: SOTROVIMAB
     Indication: COVID-19
     Dosage: 500 MG/DAY
     Route: 042
     Dates: start: 20220409, end: 20220409
  2. MAGNESIUM OXIDE [Suspect]
     Active Substance: MAGNESIUM OXIDE
     Indication: Constipation
     Dosage: ADJUSTMENT AS NEEDED
     Route: 048
     Dates: start: 20211008
  3. HERBALS [Suspect]
     Active Substance: HERBALS
     Indication: Rhinorrhoea
     Dosage: 9 G/DAY
     Route: 048
     Dates: start: 20211201
  4. CLARITIN REDITABS [Suspect]
     Active Substance: LORATADINE
     Indication: Seasonal allergy
     Dosage: 10 MG/DAY
     Route: 048
     Dates: start: 20220322

REACTIONS (2)
  - Exposure during pregnancy [Unknown]
  - Live birth [Unknown]
